FAERS Safety Report 15567484 (Version 2)
Quarter: 2018Q4

REPORT INFORMATION
  Report Type: Spontaneous
  Country: JP (occurrence: JP)
  Receive Date: 20181030
  Receipt Date: 20181123
  Transmission Date: 20190205
  Serious: Yes (Hospitalization)
  Sender: FDA-Public Use
  Company Number: JP-NOVOPROD-626821

PATIENT
  Age: 49 Year
  Sex: Male
  Weight: 55 kg

DRUGS (8)
  1. DIART [Concomitant]
     Active Substance: AZOSEMIDE
     Dosage: 30 MG, QD
     Route: 065
     Dates: start: 20171228, end: 20180104
  2. NOVORAPID [Suspect]
     Active Substance: INSULIN ASPART
     Dosage: 15 U, QD
     Route: 058
     Dates: start: 20171225, end: 20180115
  3. GLUBES [Concomitant]
     Active Substance: MITIGLINIDE CALCIUM HYDRATE\VOGLIBOSE
     Dosage: 3 TAB, QD
     Dates: start: 20180212
  4. LANTUS XR [Concomitant]
     Active Substance: INSULIN GLARGINE
     Dosage: 12 U, QD (12 UNITS/DAY)
     Route: 065
     Dates: start: 20171225
  5. GLUFAST [Concomitant]
     Active Substance: MITIGLINIDE
     Dosage: 30 MG, QD
     Route: 065
     Dates: start: 20180109, end: 20180111
  6. NOVORAPID [Suspect]
     Active Substance: INSULIN ASPART
     Indication: TYPE 2 DIABETES MELLITUS
     Dosage: 36 U, QD
     Route: 058
     Dates: start: 20171218
  7. LANTUS [Suspect]
     Active Substance: INSULIN GLARGINE
     Indication: TYPE 2 DIABETES MELLITUS
     Dosage: 15 IU, QD
     Route: 058
     Dates: start: 20171218, end: 20171225
  8. TRULICITY [Concomitant]
     Active Substance: DULAGLUTIDE
     Dosage: 0.75 MG, QD
     Route: 065

REACTIONS (1)
  - Cardiac failure [Recovering/Resolving]

NARRATIVE: CASE EVENT DATE: 20171225
